FAERS Safety Report 25383519 (Version 1)
Quarter: 2025Q2

REPORT INFORMATION
  Report Type: Spontaneous
  Country: US (occurrence: US)
  Receive Date: 20250602
  Receipt Date: 20250602
  Transmission Date: 20250717
  Serious: No
  Sender: CHIESI
  Company Number: US-CHIESI-2025CHF02563

PATIENT
  Sex: Male

DRUGS (2)
  1. ELFABRIO [Suspect]
     Active Substance: PEGUNIGALSIDASE ALFA-IWXJ
     Indication: Fabry^s disease
     Dosage: 1 MILLIGRAM/KILOGRAM, QOW
     Route: 042
     Dates: start: 20241028, end: 20241223
  2. ELFABRIO [Suspect]
     Active Substance: PEGUNIGALSIDASE ALFA-IWXJ
     Dosage: 1 MILLIGRAM/KILOGRAM, QOW
     Route: 042
     Dates: start: 20250320, end: 20250403

REACTIONS (3)
  - Globotriaosylsphingosine increased [Not Recovered/Not Resolved]
  - Blood immunoglobulin E increased [Unknown]
  - Product administration interrupted [Recovered/Resolved]

NARRATIVE: CASE EVENT DATE: 20241223
